FAERS Safety Report 6592828-7 (Version None)
Quarter: 2010Q1

REPORT INFORMATION
  Report Type: 
  Country: None (occurrence: None)
  Receive Date: 20100212
  Receipt Date: 20100125
  Transmission Date: 20100710
  Serious: Yes (Other)
  Sender: FDA-Public Use
  Company Number: TRP_06683_2009

PATIENT
  Sex: Female

DRUGS (2)
  1. RIBAVIRIN [Suspect]
     Indication: HEPATITIS C
     Dosage: (600 MG,^ 600 MG DIVIDED DOSES DAILY^ ORAL)
     Route: 048
     Dates: start: 20091211
  2. PEGASYS [Suspect]
     Indication: HEPATITIS C
     Dosage: (135 ?G  1X/WEEK SUBCUTANEOUS)
     Route: 058
     Dates: start: 20091211

REACTIONS (8)
  - ALANINE AMINOTRANSFERASE INCREASED [None]
  - ASPARTATE AMINOTRANSFERASE INCREASED [None]
  - CHILLS [None]
  - FEELING HOT [None]
  - HYPERTRICHOSIS [None]
  - PAIN [None]
  - PALPITATIONS [None]
  - PERIPHERAL COLDNESS [None]
